FAERS Safety Report 6704212-3 (Version None)
Quarter: 2010Q2

REPORT INFORMATION
  Report Type: 
  Country: None (occurrence: None)
  Receive Date: 20100428
  Receipt Date: 20100416
  Transmission Date: 20101027
  Serious: Yes (Hospitalization, Other)
  Sender: FDA-Public Use
  Company Number: 1-22093646

PATIENT
  Age: 3 Year
  Sex: Female
  Weight: 14.6058 kg

DRUGS (8)
  1. BACTRIM [Suspect]
     Dosage: 5ML, 2X DAILY:3 DAYS/WEEK, ORAL
     Route: 048
     Dates: start: 20090301
  2. PF-02341066 (STUDY DRUG) [Suspect]
     Indication: NEUROBLASTOMA
     Dosage: 165 MG/M^2, TWICE DAILY
     Dates: start: 20100211, end: 20100302
  3. NEURONTIN [Suspect]
     Dosage: ORAL
     Route: 048
     Dates: start: 20091203
  4. EMLA [Concomitant]
  5. ORAL LACTULOSE [Concomitant]
  6. MORPHINE [Concomitant]
  7. ORAL ZOFRAN (ONDANSETRON HYDROCHLORIDE) [Concomitant]
  8. .. [Concomitant]

REACTIONS (3)
  - NEUTROPENIA [None]
  - PAIN [None]
  - PYREXIA [None]
